FAERS Safety Report 4982682-9 (Version None)
Quarter: 2006Q2

REPORT INFORMATION
  Report Type: 
  Country: None (occurrence: None)
  Receive Date: 20060425
  Receipt Date: 20060103
  Transmission Date: 20061013
  Serious: Yes (Hospitalization, Disabling)
  Sender: FDA-Public Use
  Company Number: US-MERCK-0601USA00245

PATIENT
  Age: 56 Year
  Sex: Female
  Weight: 122 kg

DRUGS (21)
  1. VIOXX [Suspect]
     Indication: RHEUMATOID ARTHRITIS
     Route: 048
     Dates: start: 19991001, end: 20040801
  2. VIOXX [Suspect]
     Route: 048
     Dates: start: 20030903
  3. VIOXX [Suspect]
     Indication: FIBROMYALGIA
     Route: 048
     Dates: start: 19991001, end: 20040801
  4. VIOXX [Suspect]
     Route: 048
     Dates: start: 20030903
  5. ASPIRIN [Concomitant]
     Route: 065
  6. PROPRANOLOL HYDROCHLORIDE [Concomitant]
     Route: 065
  7. ESTRADERM [Concomitant]
     Route: 065
  8. ZYRTEC [Concomitant]
     Route: 065
  9. ALBUTEROL [Concomitant]
     Route: 065
  10. [THERAPY UNSPECIFIED] [Concomitant]
     Route: 065
  11. AMITRIPTYLINE HYDROCHLORIDE [Concomitant]
     Route: 065
  12. AMBIEN [Concomitant]
     Route: 065
  13. ZOLOFT [Concomitant]
     Route: 065
  14. HYDROCHLOROTHIAZIDE AND TRIAMTERENE [Concomitant]
     Route: 065
  15. ZANAFLEX [Concomitant]
     Route: 065
  16. FLONASE [Concomitant]
     Route: 065
  17. PLAQUENIL [Concomitant]
     Route: 065
  18. NEXIUM [Concomitant]
     Route: 065
  19. RANITIDINE [Concomitant]
     Route: 065
  20. METHOCARBAMOL [Concomitant]
     Route: 065
  21. PILOCARPINE [Concomitant]
     Route: 065

REACTIONS (25)
  - ANGINA PECTORIS [None]
  - ANHEDONIA [None]
  - ANXIETY [None]
  - ASTHMA [None]
  - BLOOD PRESSURE ORTHOSTATIC [None]
  - CARPAL TUNNEL SYNDROME [None]
  - CEREBROVASCULAR ACCIDENT [None]
  - CHEST PAIN [None]
  - DEPRESSION [None]
  - DIABETES MELLITUS [None]
  - DIZZINESS POSTURAL [None]
  - FIBROMYALGIA [None]
  - HYPERSENSITIVITY [None]
  - HYPERTENSION [None]
  - INTERVERTEBRAL DISC PROTRUSION [None]
  - IRRITABLE BOWEL SYNDROME [None]
  - MIGRAINE [None]
  - MUSCLE TWITCHING [None]
  - NARCOLEPSY [None]
  - NERVOUS SYSTEM DISORDER [None]
  - PAIN [None]
  - PALPITATIONS [None]
  - RHINITIS ALLERGIC [None]
  - SJOGREN'S SYNDROME [None]
  - TENDONITIS [None]
